FAERS Safety Report 5935984-3 (Version None)
Quarter: 2008Q4

REPORT INFORMATION
  Report Type: 
  Country: None (occurrence: None)
  Receive Date: 20081030
  Receipt Date: 20081024
  Transmission Date: 20090506
  Serious: Yes (Hospitalization)
  Sender: FDA-Public Use
  Company Number: FR-MERCK-0810FRA00095

PATIENT
  Age: 70 Year
  Sex: Male

DRUGS (10)
  1. PRIMAXIN [Suspect]
     Indication: CELLULITIS
     Route: 042
     Dates: start: 20080904, end: 20080907
  2. METOCLOPRAMIDE HYDROCHLORIDE [Concomitant]
     Route: 065
  3. ATENOLOL [Concomitant]
     Indication: HYPERTENSION
     Route: 048
  4. ATORVASTATIN [Concomitant]
     Indication: DYSLIPIDAEMIA
     Route: 048
  5. ENOXAPARIN SODIUM [Concomitant]
     Indication: THROMBOSIS PROPHYLAXIS
     Route: 058
  6. FUROSEMIDE [Concomitant]
     Indication: HYPERTENSION
     Route: 048
  7. ASPIRIN [Concomitant]
     Indication: THROMBOSIS PROPHYLAXIS
     Route: 048
  8. PANTOPRAZOLE SODIUM [Concomitant]
     Route: 048
  9. RILMENIDINE PHOSPHATE [Concomitant]
     Indication: HYPERTENSION
     Route: 048
  10. CALCIUM CARBONATE [Concomitant]
     Route: 048

REACTIONS (1)
  - MYOCLONIC EPILEPSY [None]
